FAERS Safety Report 5391745-8 (Version None)
Quarter: 2007Q3

REPORT INFORMATION
  Report Type: 
  Country: None (occurrence: None)
  Receive Date: 20070717
  Receipt Date: 20070703
  Transmission Date: 20080115
  Serious: Yes (Life-Threatening, Hospitalization)
  Sender: FDA-Public Use
  Company Number: 2007RR-08446

PATIENT
  Age: 79 Year
  Sex: Female

DRUGS (6)
  1. LISINOPRIL [Suspect]
     Indication: HYPERTENSION
     Dosage: 20 MG; QD; ORAL
     Route: 048
     Dates: end: 20070613
  2. ADALAT CC [Concomitant]
  3. ASPIRIN [Concomitant]
  4. ATORVASTATIN CALCIUM [Concomitant]
  5. GLICLAZIDE (GIICLAZIDE) [Concomitant]
  6. METFORMIN HYDROCHLORIDE [Concomitant]

REACTIONS (1)
  - ANGIOEDEMA [None]
